FAERS Safety Report 5989148-8 (Version None)
Quarter: 2008Q4

REPORT INFORMATION
  Report Type: 
  Country: None (occurrence: None)
  Receive Date: 20081204
  Receipt Date: 20081128
  Transmission Date: 20090506
  Serious: Yes (Hospitalization)
  Sender: FDA-Public Use
  Company Number: T06-JPN-04605-01

PATIENT
  Age: 82 Year
  Sex: Male
  Weight: 58 kg

DRUGS (2)
  1. MEMANTINE HCL [Suspect]
     Indication: DEMENTIA ALZHEIMER'S TYPE
     Dosage: 20 MG (20 MG, 1 IN 1 D), ORAL
     Route: 048
     Dates: start: 20060926, end: 20061010
  2. TIAPRIDE HYDROCHLORIDE (TIAPRIDE HYDROCHLORIDE) (TIAPRIDE HYDROCHLORID [Concomitant]

REACTIONS (3)
  - AGITATION [None]
  - DELUSION [None]
  - MEMORY IMPAIRMENT [None]
